FAERS Safety Report 10162119 (Version 1)
Quarter: 2014Q2

REPORT INFORMATION
  Report Type: Spontaneous
  Country: GR (occurrence: GR)
  Receive Date: 20140509
  Receipt Date: 20140509
  Transmission Date: 20141212
  Serious: Yes (Other)
  Sender: FDA-Public Use
  Company Number: GR-AMGEN INC.-GRCSP2014032304

PATIENT
  Age: 75 Year
  Sex: Female

DRUGS (5)
  1. NPLATE [Suspect]
     Indication: IMMUNE THROMBOCYTOPENIC PURPURA
     Dosage: 9-10 UG/KG
     Route: 065
     Dates: start: 2010, end: 20140428
  2. LOSEC                              /00661201/ [Concomitant]
  3. GLUCOPHAGE [Concomitant]
  4. TENORMIN [Concomitant]
  5. NORVASC [Concomitant]

REACTIONS (1)
  - Myasthenia gravis [Not Recovered/Not Resolved]
